FAERS Safety Report 10384737 (Version 1)
Quarter: 2014Q1

REPORT INFORMATION
  Report Type: Spontaneous
  Country: US (occurrence: None)
  Receive Date: 20140306
  Receipt Date: 20140306
  Transmission Date: 20141002
  Serious: Yes (Other)
  Sender: FDA-Public Use
  Company Number: 163-21880-13120607

PATIENT
  Age: 59 Year
  Sex: Male

DRUGS (1)
  1. REVLIMID (LENALIDOMIDE) (25 MILLIGRAM, CAPSULES) [Suspect]
     Indication: PLASMA CELL MYELOMA
     Route: 048
     Dates: start: 200907

REACTIONS (10)
  - Thrombosis [None]
  - Pain in extremity [None]
  - Local swelling [None]
  - Local swelling [None]
  - Malaise [None]
  - Syncope [None]
  - Dry mouth [None]
  - Dizziness [None]
  - Back pain [None]
  - Pain [None]
